FAERS Safety Report 13986501 (Version 2)
Quarter: 2017Q3

REPORT INFORMATION
  Report Type: Spontaneous
  Country: US (occurrence: US)
  Receive Date: 20170919
  Receipt Date: 20170925
  Transmission Date: 20171128
  Serious: Yes (Other)
  Sender: FDA-Public Use
  Company Number: US-MALLINCKRODT-T201703764

PATIENT
  Age: 76 Year
  Sex: Male
  Weight: 110 kg

DRUGS (6)
  1. GLYBURIDE. [Concomitant]
     Active Substance: GLYBURIDE
     Indication: PRODUCT USED FOR UNKNOWN INDICATION
     Dosage: UNK
  2. H.P. ACTHAR [Suspect]
     Active Substance: CORTICOTROPIN
     Indication: PROTEINURIA
     Dosage: 40 UNITS / .5 ML,  2 TIMES PER WEEK
     Route: 058
     Dates: start: 20170814
  3. H.P. ACTHAR [Suspect]
     Active Substance: CORTICOTROPIN
     Indication: RENAL DISORDER
     Dosage: 80 UNITS / 80 UNITS/ML, TWICE A WEEK FOR 6 MONTHS
     Route: 058
     Dates: start: 2017
  4. METFORMIN [Suspect]
     Active Substance: METFORMIN HYDROCHLORIDE
     Indication: PRODUCT USED FOR UNKNOWN INDICATION
     Dosage: UNK
     Route: 065
  5. INSULIN [Concomitant]
     Active Substance: INSULIN NOS
     Indication: PRODUCT USED FOR UNKNOWN INDICATION
  6. H.P. ACTHAR [Suspect]
     Active Substance: CORTICOTROPIN
     Indication: NEPHROTIC SYNDROME

REACTIONS (11)
  - Dyspnoea [Unknown]
  - Hypertension [Unknown]
  - Fatigue [Unknown]
  - Somnolence [Unknown]
  - Blood glucose increased [Unknown]
  - Asthenia [Unknown]
  - Nasopharyngitis [Unknown]
  - Blood glucose decreased [Unknown]
  - Muscle spasms [Unknown]
  - Weight increased [Unknown]
  - Renal impairment [Unknown]

NARRATIVE: CASE EVENT DATE: 20170911
